FAERS Safety Report 24034535 (Version 1)
Quarter: 2024Q3

REPORT INFORMATION
  Report Type: Spontaneous
  Country: TR (occurrence: TR)
  Receive Date: 20240701
  Receipt Date: 20240701
  Transmission Date: 20241016
  Serious: Yes (Hospitalization)
  Sender: CHEPLAPHARM
  Company Number: TR-CHEPLA-2024008202

PATIENT
  Age: 60 Year
  Sex: Female

DRUGS (22)
  1. OLANZAPINE [Suspect]
     Active Substance: OLANZAPINE
     Dosage: DAILY DOSE: 5 MILLIGRAM
  2. OLANZAPINE [Suspect]
     Active Substance: OLANZAPINE
     Dosage: DAILY DOSE: 10 MILLIGRAM
  3. QUETIAPINE [Concomitant]
     Active Substance: QUETIAPINE
     Dosage: DAILY DOSE: 100 MILLIGRAM
  4. LITHIUM [Concomitant]
     Active Substance: LITHIUM
     Indication: Blood creatinine increased
     Dosage: IRREGULARLY IN EARLY 2019
     Dates: start: 2019
  5. LITHIUM [Concomitant]
     Active Substance: LITHIUM
     Indication: Renal function test abnormal
     Dosage: IRREGULARLY IN EARLY 2019
     Dates: start: 2019
  6. LITHIUM [Concomitant]
     Active Substance: LITHIUM
     Indication: Glomerular filtration rate decreased
     Dosage: IRREGULARLY IN EARLY 2019
     Dates: start: 2019
  7. LITHIUM [Concomitant]
     Active Substance: LITHIUM
     Indication: Blood creatinine increased
     Dosage: REGULARLY
     Dates: end: 2019
  8. LITHIUM [Concomitant]
     Active Substance: LITHIUM
     Indication: Renal function test abnormal
     Dosage: REGULARLY
     Dates: end: 2019
  9. LITHIUM [Concomitant]
     Active Substance: LITHIUM
     Indication: Glomerular filtration rate decreased
     Dosage: REGULARLY
     Dates: end: 2019
  10. LITHIUM [Concomitant]
     Active Substance: LITHIUM
     Indication: Blood creatinine increased
     Dosage: DAILY DOSE: 1200 MILLIGRAM
  11. LITHIUM [Concomitant]
     Active Substance: LITHIUM
     Indication: Renal function test abnormal
     Dosage: DAILY DOSE: 1200 MILLIGRAM
  12. LITHIUM [Concomitant]
     Active Substance: LITHIUM
     Indication: Glomerular filtration rate decreased
     Dosage: DAILY DOSE: 1200 MILLIGRAM
  13. LITHIUM [Concomitant]
     Active Substance: LITHIUM
     Indication: Blood creatinine increased
     Dosage: REDUCED?DAILY DOSE: 600 MILLIGRAM
  14. LITHIUM [Concomitant]
     Active Substance: LITHIUM
     Indication: Renal function test abnormal
     Dosage: REDUCED?DAILY DOSE: 600 MILLIGRAM
  15. LITHIUM [Concomitant]
     Active Substance: LITHIUM
     Indication: Glomerular filtration rate decreased
     Dosage: REDUCED?DAILY DOSE: 600 MILLIGRAM
  16. LITHIUM [Concomitant]
     Active Substance: LITHIUM
     Indication: Blood creatinine increased
     Dosage: ADJUSTED AS LITHIUM 300 MG ON ALTERNATE DAYS
  17. LITHIUM [Concomitant]
     Active Substance: LITHIUM
     Indication: Renal function test abnormal
     Dosage: ADJUSTED AS LITHIUM 300 MG ON ALTERNATE DAYS
  18. LITHIUM [Concomitant]
     Active Substance: LITHIUM
     Indication: Glomerular filtration rate decreased
     Dosage: ADJUSTED AS LITHIUM 300 MG ON ALTERNATE DAYS
  19. ALPRAZOLAM [Concomitant]
     Active Substance: ALPRAZOLAM
     Dosage: DAILY DOSE: 1 MILLIGRAM
  20. MIRTAZAPINE [Concomitant]
     Active Substance: MIRTAZAPINE
     Dosage: DAILY DOSE: 15 MILLIGRAM
  21. TRIFLUOPERAZINE [Concomitant]
     Active Substance: TRIFLUOPERAZINE HYDROCHLORIDE
     Dosage: DAILY DOSE: 1 MILLIGRAM
  22. SERTRALINE [Suspect]
     Active Substance: SERTRALINE HYDROCHLORIDE
     Dosage: DAILY DOSE: 25 MILLIGRAM

REACTIONS (7)
  - Neuroleptic malignant syndrome [Recovered/Resolved]
  - Bradykinesia [Recovered/Resolved]
  - Tremor [Recovering/Resolving]
  - Skin wrinkling [Recovered/Resolved]
  - Ataxia [Recovering/Resolving]
  - Cogwheel rigidity [Recovering/Resolving]
  - Toxicity to various agents [Recovered/Resolved]
